FAERS Safety Report 14610640 (Version 1)
Quarter: 2018Q1

REPORT INFORMATION
  Report Type: Spontaneous
  Country: DE (occurrence: DE)
  Receive Date: 20180307
  Receipt Date: 20180307
  Transmission Date: 20180509
  Serious: Yes (Life-Threatening, Hospitalization, Other)
  Sender: FDA-Public Use
  Company Number: DE-CONCORDIA PHARMACEUTICALS INC.-E2B_00010143

PATIENT
  Age: 66 Year
  Sex: Male

DRUGS (28)
  1. TORSEMIDE. [Concomitant]
     Active Substance: TORSEMIDE
     Route: 065
  2. ACETYLSALICYLIC ACID [Concomitant]
     Active Substance: ASPIRIN
     Route: 065
  3. PREDNISOLONE. [Suspect]
     Active Substance: PREDNISOLONE
     Route: 065
     Dates: start: 20120901
  4. TACROLIMUS. [Suspect]
     Active Substance: TACROLIMUS
     Route: 065
     Dates: start: 20120801
  5. SULFAMETHOXAZOLE/TRIMETHOPRIM [Suspect]
     Active Substance: SULFAMETHOXAZOLE\TRIMETHOPRIM
     Route: 065
     Dates: start: 20120801, end: 20120901
  6. ANTI-THYMOCYTE GLOBULIN (RABBIT) NOS [Suspect]
     Active Substance: LAPINE T-LYMPHOCYTE IMMUNE GLOBULIN
     Indication: PROPHYLAXIS AGAINST TRANSPLANT REJECTION
     Route: 065
     Dates: start: 20120801, end: 20120801
  7. THYMOGLOBULIN [Concomitant]
     Active Substance: LAPINE T-LYMPHOCYTE IMMUNE GLOBULIN
     Indication: RENAL TRANSPLANT
     Dosage: UNK UNK, UNKNOWN FREQ.
     Route: 065
  8. TACROLIMUS. [Suspect]
     Active Substance: TACROLIMUS
     Indication: PROPHYLAXIS AGAINST TRANSPLANT REJECTION
     Route: 065
     Dates: start: 20120901
  9. AMIKACIN [Suspect]
     Active Substance: AMIKACIN
     Indication: ANTIBIOTIC THERAPY
     Dosage: UNK UNK, UNKNOWN FREQ.
     Route: 065
  10. ACICLOVIR [Concomitant]
     Active Substance: ACYCLOVIR
     Dosage: ACICLOVIR AT A PROPHYLACTIC DOSAGE
     Route: 061
  11. PENTACARINAT [Concomitant]
     Active Substance: PENTAMIDINE ISETHIONATE
     Indication: ANTIFUNGAL PROPHYLAXIS
     Route: 045
     Dates: start: 20120901
  12. PREDNISOLONE. [Suspect]
     Active Substance: PREDNISOLONE
     Route: 065
  13. MYCOPHENOLATE MOFETIL. [Suspect]
     Active Substance: MYCOPHENOLATE MOFETIL
     Indication: PROPHYLAXIS AGAINST TRANSPLANT REJECTION
     Route: 065
     Dates: start: 20120801
  14. COTRIMOXAZOLE [Suspect]
     Active Substance: SULFAMETHOXAZOLE\TRIMETHOPRIM
     Indication: NOCARDIOSIS
     Route: 048
  15. TORSEMIDE. [Concomitant]
     Active Substance: TORSEMIDE
     Route: 065
  16. PENTACARINAT [Concomitant]
     Active Substance: PENTAMIDINE ISETHIONATE
     Route: 065
  17. TRIMETHOPRIM SULFAMETHOXAZOLE [Suspect]
     Active Substance: SULFAMETHOXAZOLE\TRIMETHOPRIM
     Indication: ANTIBIOTIC THERAPY
     Dosage: DAILY DOSE: 1920 MG MILLIGRAM(S) EVERY DAY
     Route: 048
     Dates: start: 20130402, end: 20130404
  18. METAMIZOLE [Concomitant]
     Active Substance: METAMIZOLE
     Route: 048
  19. SULFAMETHOXAZOLE/TRIMETHOPRIM [Suspect]
     Active Substance: SULFAMETHOXAZOLE\TRIMETHOPRIM
     Indication: INFECTION
     Dosage: DAILY DOSE: 1920 MG MILLIGRAM(S) EVERY DAY
     Route: 048
     Dates: start: 20130402, end: 20130404
  20. ISONIAZID. [Suspect]
     Active Substance: ISONIAZID
     Indication: ANTIBIOTIC PROPHYLAXIS
     Dosage: UNK UNK, UNKNOWN FREQ.
     Route: 065
  21. ISONIAZID. [Suspect]
     Active Substance: ISONIAZID
     Indication: ANTIBIOTIC PROPHYLAXIS
     Route: 065
  22. PREDNISOLONE. [Suspect]
     Active Substance: PREDNISOLONE
     Route: 065
     Dates: start: 20121001
  23. PREDNISOLONE. [Suspect]
     Active Substance: PREDNISOLONE
     Indication: PROPHYLAXIS AGAINST TRANSPLANT REJECTION
     Dosage: DAILY DOSE: 20 MG MILLIGRAM(S) EVERY DAY
     Route: 048
     Dates: start: 20120801
  24. MYCOPHENOLATE MOFETIL. [Suspect]
     Active Substance: MYCOPHENOLATE MOFETIL
     Route: 065
     Dates: start: 20121001
  25. VALGANCICLOVIR. [Suspect]
     Active Substance: VALGANCICLOVIR
     Indication: ANTIBIOTIC THERAPY
     Dosage: UNK UNK, UNKNOWN FREQ.
     Route: 048
  26. PREDNISOLONE. [Suspect]
     Active Substance: PREDNISOLONE
     Route: 065
  27. TACROLIMUS. [Suspect]
     Active Substance: TACROLIMUS
     Route: 065
     Dates: start: 20121001
  28. TACROLIMUS. [Suspect]
     Active Substance: TACROLIMUS
     Route: 065

REACTIONS (39)
  - Renal transplant failure [Recovered/Resolved]
  - Delayed graft function [Unknown]
  - Tremor [Unknown]
  - Inappropriate antidiuretic hormone secretion [Unknown]
  - Pleural effusion [Unknown]
  - Tachycardia [Unknown]
  - Acute kidney injury [Unknown]
  - Mycobacterium fortuitum infection [Unknown]
  - Inappropriate antidiuretic hormone secretion [Recovered/Resolved]
  - Ventricular tachycardia [Unknown]
  - Lymphocele [Unknown]
  - Central nervous system lesion [Unknown]
  - Inappropriate antidiuretic hormone secretion [Recovered/Resolved]
  - Complications of transplanted kidney [Unknown]
  - Herpes simplex [Unknown]
  - Enterococcal infection [Unknown]
  - Transplant failure [Recovered/Resolved]
  - Cytomegalovirus viraemia [Unknown]
  - Subcutaneous abscess [Unknown]
  - Pulmonary tuberculosis [Unknown]
  - Hyperacusis [Unknown]
  - Complications of transplanted kidney [Recovered/Resolved]
  - Urogenital infection bacterial [Unknown]
  - Productive cough [Unknown]
  - Urinary tract infection [Unknown]
  - Pneumonia [Unknown]
  - Acute kidney injury [Recovering/Resolving]
  - Hyponatraemia [Recovered/Resolved]
  - Hyperkalaemia [Unknown]
  - Nocardiosis [Recovered/Resolved]
  - Cardiac failure [Unknown]
  - Pancreatic pseudocyst [Unknown]
  - Arthralgia [Recovered/Resolved]
  - Candida infection [Unknown]
  - Pneumonia [Recovered/Resolved]
  - Acinetobacter infection [Unknown]
  - Drug level fluctuating [Unknown]
  - Ventricular extrasystoles [Unknown]
  - Genitourinary tract infection [Unknown]

NARRATIVE: CASE EVENT DATE: 20120101
